FAERS Safety Report 5862899-1 (Version None)
Quarter: 2008Q3

REPORT INFORMATION
  Report Type: 
  Country: None (occurrence: None)
  Receive Date: 20080828
  Receipt Date: 20080821
  Transmission Date: 20090109
  Serious: Yes (Other)
  Sender: FDA-Public Use
  Company Number: A0739648A

PATIENT
  Age: 52 Year
  Sex: Male
  Weight: 111.8 kg

DRUGS (5)
  1. AVANDIA [Suspect]
     Dosage: 8MG PER DAY
     Route: 048
     Dates: start: 20060501, end: 20070501
  2. METFORMIN HCL [Concomitant]
     Dates: start: 20020201
  3. GLUCOTROL [Concomitant]
     Dates: start: 20030401
  4. GLUCOTROL [Concomitant]
     Dates: start: 20030401
  5. AMARYL [Concomitant]
     Dates: start: 20020201

REACTIONS (7)
  - CARDIAC DISORDER [None]
  - CARDIAC FAILURE CONGESTIVE [None]
  - CARDIAC HYPERTROPHY [None]
  - DYSPNOEA [None]
  - LUNG DISORDER [None]
  - OEDEMA PERIPHERAL [None]
  - WEIGHT INCREASED [None]
